FAERS Safety Report 4280345-9 (Version None)
Quarter: 2004Q1

REPORT INFORMATION
  Report Type: 
  Country: None (occurrence: None)
  Receive Date: 20040127
  Receipt Date: 20040115
  Transmission Date: 20041129
  Serious: Yes (Other)
  Sender: FDA-Public Use
  Company Number: 12483269

PATIENT
  Age: 23 Year
  Sex: Male

DRUGS (10)
  1. IFOSFAMIDE [Suspect]
     Indication: LYMPHOMA
     Dosage: 2500 MG/M2, IV
     Route: 042
  2. ETOPOSIDE [Suspect]
     Indication: LYMPHOMA
     Dosage: 150 MG/M2, IV
     Route: 042
  3. EPIRUBICIN [Suspect]
     Indication: LYMPHOMA
     Dosage: 100 MG/M2 IV
     Route: 042
  4. CYCLOPHOSPHAMIDE [Concomitant]
  5. DOXORUBICIN (DOXORUBICIN HCL) [Concomitant]
  6. VINCRISTINE [Concomitant]
  7. PREDNISONE [Concomitant]
  8. BUSULFAN [Concomitant]
  9. MELPHALAN [Concomitant]
  10. INTERFERON ALFA [Concomitant]

REACTIONS (6)
  - ANAPLASTIC LARGE CELL LYMPHOMA T- AND NULL-CELL TYPES [None]
  - BONE MARROW TRANSPLANT [None]
  - DRUG TOXICITY [None]
  - EJECTION FRACTION DECREASED [None]
  - GRAFT VERSUS HOST DISEASE [None]
  - MALIGNANT NEOPLASM PROGRESSION [None]
